FAERS Safety Report 13829234 (Version 2)
Quarter: 2017Q3

REPORT INFORMATION
  Report Type: Report from Study
  Country: CA (occurrence: CA)
  Receive Date: 20170803
  Receipt Date: 20170804
  Transmission Date: 20171127
  Serious: Yes (Other)
  Sender: FDA-Public Use
  Company Number: CA-JNJFOC-20170620085

PATIENT
  Age: 61 Year
  Sex: Male
  Weight: 63.4 kg

DRUGS (1)
  1. REMICADE [Suspect]
     Active Substance: INFLIXIMAB
     Indication: CROHN^S DISEASE
     Route: 042
     Dates: start: 20140214

REACTIONS (1)
  - Colostomy closure [Recovered/Resolved]

NARRATIVE: CASE EVENT DATE: 20170611
